FAERS Safety Report 7092016-4 (Version None)
Quarter: 2010Q4

REPORT INFORMATION
  Report Type: 
  Country: None (occurrence: None)
  Receive Date: 20101109
  Receipt Date: 20081106
  Transmission Date: 20110411
  Serious: No
  Sender: FDA-Public Use
  Company Number: US-KINGPHARMUSA00001-K200801288

PATIENT
  Sex: Male

DRUGS (1)
  1. CORGARD [Suspect]

REACTIONS (2)
  - DIZZINESS [None]
  - VISUAL IMPAIRMENT [None]
